FAERS Safety Report 11080981 (Version 1)
Quarter: 2015Q2

REPORT INFORMATION
  Report Type: Spontaneous
  Country: US (occurrence: US)
  Receive Date: 20150501
  Receipt Date: 20150501
  Transmission Date: 20150821
  Serious: No
  Sender: FDA-Public Use
  Company Number: US-JNJFOC-20150419014

PATIENT
  Age: 37 Year
  Sex: Female
  Weight: 45.36 kg

DRUGS (2)
  1. DURAGESIC [Suspect]
     Active Substance: FENTANYL
     Indication: CANCER PAIN
     Route: 062
     Dates: start: 201502
  2. DURAGESIC [Suspect]
     Active Substance: FENTANYL
     Indication: CROHN^S DISEASE
     Route: 062
     Dates: start: 201502

REACTIONS (3)
  - Product quality issue [Unknown]
  - Inadequate analgesia [Unknown]
  - Wrong technique in drug usage process [Unknown]

NARRATIVE: CASE EVENT DATE: 201503
